FAERS Safety Report 8027906-9 (Version None)
Quarter: 2012Q1

REPORT INFORMATION
  Report Type: 
  Country: None (occurrence: None)
  Receive Date: 20120106
  Receipt Date: 20111229
  Transmission Date: 20120608
  Serious: Yes (Hospitalization, Other)
  Sender: FDA-Public Use
  Company Number: US-MPIJNJ-2011-06029

PATIENT
  Sex: Male
  Weight: 89.977 kg

DRUGS (2)
  1. VELCADE [Suspect]
     Indication: MULTIPLE MYELOMA
     Dosage: 1.3 MG, 1/WEEK
     Route: 042
     Dates: start: 20110621
  2. VELCADE [Suspect]
     Dosage: 1 UNK, UNK
     Dates: start: 20110718, end: 20111108

REACTIONS (4)
  - MYOCARDIAL INFARCTION [None]
  - PNEUMONIA [None]
  - DYSPNOEA [None]
  - CHEST PAIN [None]
